FAERS Safety Report 18793558 (Version 2)
Quarter: 2021Q1

REPORT INFORMATION
  Report Type: Spontaneous
  Country: CO (occurrence: CO)
  Receive Date: 20210127
  Receipt Date: 20210326
  Transmission Date: 20210419
  Serious: Yes (Other)
  Sender: FDA-Public Use
  Company Number: CO-PFIZER INC-2021051190

PATIENT
  Age: 12 Year
  Sex: Male

DRUGS (1)
  1. GENOTROPIN [Suspect]
     Active Substance: SOMATROPIN
     Dosage: 2 MG, DAILY (EVERY NIGHT)
     Route: 058
     Dates: start: 20210114, end: 20210115

REACTIONS (6)
  - Device issue [Unknown]
  - Anxiety [Unknown]
  - Loss of consciousness [Recovered/Resolved]
  - Wrong technique in product usage process [Unknown]
  - Stress [Unknown]
  - Intentional dose omission [Unknown]

NARRATIVE: CASE EVENT DATE: 20210115
